FAERS Safety Report 4300244-3 (Version None)
Quarter: 2004Q1

REPORT INFORMATION
  Report Type: 
  Country: None (occurrence: None)
  Receive Date: 20040218
  Receipt Date: 20040203
  Transmission Date: 20041129
  Serious: Yes (Hospitalization)
  Sender: FDA-Public Use
  Company Number: EWC040237944

PATIENT
  Age: 67 Year
  Sex: Male

DRUGS (5)
  1. ZYPREXA [Suspect]
     Indication: SCHIZOPHRENIA, PARANOID TYPE
     Dosage: 1 DSG FORM/DAY
     Dates: start: 20030920, end: 20031017
  2. TAPAZOLE [Concomitant]
  3. PERTIROID (POTASSIUM PERCHLORATE) [Concomitant]
  4. ENAPREN (ENALAPRIL MALEATE) [Concomitant]
  5. CARVEDILOL [Concomitant]

REACTIONS (3)
  - HEPATITIS CHOLESTATIC [None]
  - HYPERTHYROIDISM [None]
  - PYREXIA [None]
